FAERS Safety Report 6502327-6 (Version None)
Quarter: 2009Q4

REPORT INFORMATION
  Report Type: 
  Country: None (occurrence: None)
  Receive Date: 20091216
  Receipt Date: 20091016
  Transmission Date: 20100525
  Serious: No
  Sender: FDA-Public Use
  Company Number: US-ABBOTT-09P-163-0604301-00

PATIENT
  Sex: Male

DRUGS (7)
  1. TRILIPIX [Suspect]
     Indication: HYPERLIPIDAEMIA
     Dates: start: 20090817, end: 20091001
  2. ALLOPURINOL [Concomitant]
     Indication: GOUT
  3. GLYBURIDE [Concomitant]
     Indication: DIABETES MELLITUS
  4. ACTOS [Concomitant]
     Indication: DIABETES MELLITUS
  5. FOSPHENAPRIL [Concomitant]
     Indication: HYPERTENSION
  6. COLCHICINE [Concomitant]
     Indication: GOUT
     Dosage: AS NEEDED
  7. OMACOR [Concomitant]
     Indication: SUPPLEMENTATION THERAPY

REACTIONS (1)
  - VIOLENCE-RELATED SYMPTOM [None]
